FAERS Safety Report 9410319 (Version 1)
Quarter: 2013Q3

REPORT INFORMATION
  Report Type: Spontaneous
  Country: US (occurrence: US)
  Receive Date: 20130719
  Receipt Date: 20130719
  Transmission Date: 20140515
  Serious: Yes (Hospitalization)
  Sender: FDA-Public Use
  Company Number: US-PFIZER INC-2013208382

PATIENT
  Sex: Female

DRUGS (2)
  1. LEVOXYL [Suspect]
     Indication: THYROID DISORDER
     Dosage: 0.075 MG, 1X/DAY
     Route: 048
  2. DIPYRIDAMOLE [Concomitant]
     Dosage: UNK

REACTIONS (2)
  - Ovarian cancer [Unknown]
  - Thrombosis [Unknown]
